FAERS Safety Report 4492951-7 (Version None)
Quarter: 2004Q4

REPORT INFORMATION
  Report Type: 
  Country: None (occurrence: None)
  Receive Date: 20041104
  Receipt Date: 20040728
  Transmission Date: 20050328
  Serious: Yes (Hospitalization, Other)
  Sender: FDA-Public Use
  Company Number: 200417574GDDC

PATIENT
  Age: 68 Year
  Sex: Male

DRUGS (2)
  1. METFORMIN [Suspect]
     Indication: DIABETES MELLITUS
     Route: 048
  2. GLYBURIDE [Suspect]
     Indication: DIABETES MELLITUS

REACTIONS (13)
  - ASTHENIA [None]
  - ATROPHY [None]
  - CEREBROVASCULAR ACCIDENT [None]
  - CLONUS [None]
  - DIFFICULTY IN WALKING [None]
  - EXTENSOR PLANTAR RESPONSE [None]
  - FALL [None]
  - HYPERREFLEXIA [None]
  - MYELITIS [None]
  - MYELOPATHY [None]
  - PARAPARESIS [None]
  - SPINAL CORD DISORDER [None]
  - VITAMIN B12 DEFICIENCY [None]
